FAERS Safety Report 6540835-2 (Version None)
Quarter: 2010Q1

REPORT INFORMATION
  Report Type: 
  Country: None (occurrence: None)
  Receive Date: 20100118
  Receipt Date: 20100105
  Transmission Date: 20100710
  Serious: Yes (Hospitalization, Other)
  Sender: FDA-Public Use
  Company Number: PHHY2009AU56330

PATIENT
  Sex: Female

DRUGS (1)
  1. CLOZARIL [Suspect]
     Indication: SCHIZOPHRENIA
     Dosage: 350 MG, UNK
     Route: 048
     Dates: start: 20091023

REACTIONS (4)
  - ABDOMINAL PAIN [None]
  - LIVER FUNCTION TEST ABNORMAL [None]
  - MENTAL DISORDER [None]
  - PSYCHOSOMATIC DISEASE [None]
